FAERS Safety Report 11964701 (Version 1)
Quarter: 2016Q1

REPORT INFORMATION
  Report Type: Spontaneous
  Country: US (occurrence: None)
  Receive Date: 20160122
  Receipt Date: 20160122
  Transmission Date: 20160526
  Serious: Yes (Hospitalization, Other)
  Sender: FDA-Public Use
  Company Number: None

PATIENT
  Age: 36 Year
  Sex: Female
  Weight: 69.85 kg

DRUGS (1)
  1. ONDANSETRON 4MG/2ML WESTWARD [Suspect]
     Active Substance: ONDANSETRON
     Route: 042

REACTIONS (8)
  - Flushing [None]
  - Throat tightness [None]
  - Anaphylactic reaction [None]
  - Heart rate increased [None]
  - Dizziness [None]
  - Vomiting [None]
  - Blood pressure decreased [None]
  - Appendicitis [None]

NARRATIVE: CASE EVENT DATE: 20160113
